FAERS Safety Report 14224154 (Version 1)
Quarter: 2017Q4

REPORT INFORMATION
  Report Type: Spontaneous
  Country: ZA (occurrence: ZA)
  Receive Date: 20171126
  Receipt Date: 20171126
  Transmission Date: 20180321
  Serious: Yes (Other)
  Sender: FDA-Public Use
  Company Number: PHHY2017ZA172061

PATIENT
  Age: 50 Year
  Sex: Male

DRUGS (1)
  1. TRILEPTAL [Suspect]
     Active Substance: OXCARBAZEPINE
     Indication: TRIGEMINAL NEURALGIA
     Dosage: 300 MG, BID (300 MG IN THE MORNING AND 300 MG IN THE NIGHT)
     Route: 065
     Dates: start: 201702

REACTIONS (4)
  - Headache [Not Recovered/Not Resolved]
  - Epilepsy [Not Recovered/Not Resolved]
  - Drug ineffective [Not Recovered/Not Resolved]
  - Muscle spasms [Not Recovered/Not Resolved]
